FAERS Safety Report 8619544 (Version 5)
Quarter: 2012Q4

REPORT INFORMATION
  Report Type: 
  Country: JP (occurrence: JP)
  Receive Date: 20120618
  Receipt Date: 20120905
  Transmission Date: 20130627
  Serious: Yes (Other)
  Sender: FDA-Public Use
  Company Number: PHHY2012JP051345

PATIENT
  Age: 7 Year
  Sex: Male

DRUGS (2)
  1. CICLOSPORIN [Suspect]
     Indication: PROPHYLAXIS AGAINST GRAFT VERSUS HOST DISEASE
     Route: 048
  2. METHOTREXATE [Concomitant]

REACTIONS (6)
  - Focal segmental glomerulosclerosis [Recovering/Resolving]
  - Nephropathy [Recovering/Resolving]
  - Thrombotic microangiopathy [Recovering/Resolving]
  - Anaemia [Recovering/Resolving]
  - Thrombocytopenia [Recovering/Resolving]
  - Rash [Recovered/Resolved]
